FAERS Safety Report 5581770-6 (Version None)
Quarter: 2008Q1

REPORT INFORMATION
  Report Type: 
  Country: None (occurrence: None)
  Receive Date: 20080104
  Receipt Date: 20071220
  Transmission Date: 20080703
  Serious: Yes (Other)
  Sender: FDA-Public Use
  Company Number: DE-AMGEN-UK248677

PATIENT
  Sex: Female
  Weight: 56 kg

DRUGS (1)
  1. NEUPOGEN [Suspect]
     Indication: AGRANULOCYTOSIS
     Route: 058
     Dates: start: 20050218, end: 20070924

REACTIONS (1)
  - ABORTION SPONTANEOUS [None]
